FAERS Safety Report 12301183 (Version 7)
Quarter: 2018Q1

REPORT INFORMATION
  Report Type: Spontaneous
  Country: US (occurrence: US)
  Receive Date: 20160425
  Receipt Date: 20180207
  Transmission Date: 20180508
  Serious: Yes (Other)
  Sender: FDA-Public Use
  Company Number: US-BAYER-2016-073438

PATIENT
  Age: 53 Year
  Sex: Male

DRUGS (6)
  1. KOGENATE FS [Suspect]
     Active Substance: ANTIHEMOPHILIC FACTOR, HUMAN RECOMBINANT
     Indication: FACTOR VIII DEFICIENCY
     Dosage: 2000 U, PRN AS NEEDED FOR BLEEDING
     Route: 042
     Dates: start: 2016
  2. KOGENATE FS [Suspect]
     Active Substance: ANTIHEMOPHILIC FACTOR, HUMAN RECOMBINANT
     Indication: FACTOR VIII DEFICIENCY
     Dosage: 2135 U, PRN
     Dates: start: 20170126
  3. KOGENATE FS [Suspect]
     Active Substance: ANTIHEMOPHILIC FACTOR, HUMAN RECOMBINANT
     Indication: FACTOR VIII DEFICIENCY
     Dosage: 4270 U, ONCE, FOR DENTAL EXTRACTIONS
     Dates: start: 20170330, end: 20170330
  4. KOGENATE FS [Suspect]
     Active Substance: ANTIHEMOPHILIC FACTOR, HUMAN RECOMBINANT
     Indication: FACTOR VIII DEFICIENCY
     Dosage: 2167 U, PRN
     Route: 042
     Dates: start: 20141219
  5. KOGENATE FS [Suspect]
     Active Substance: ANTIHEMOPHILIC FACTOR, HUMAN RECOMBINANT
     Indication: FACTOR VIII DEFICIENCY
     Dosage: 2135 U, PRN
     Route: 042
     Dates: start: 20170214
  6. KOGENATE FS [Suspect]
     Active Substance: ANTIHEMOPHILIC FACTOR, HUMAN RECOMBINANT
     Indication: FACTOR VIII DEFICIENCY
     Dosage: 2135 U, PRN
     Route: 042
     Dates: start: 20170425

REACTIONS (18)
  - Haemarthrosis [None]
  - Haemorrhage [None]
  - Dental care [None]
  - Haemarthrosis [Recovered/Resolved]
  - Haemarthrosis [None]
  - Dental care [None]
  - Mouth haemorrhage [Recovered/Resolved]
  - Tooth extraction [None]
  - Haemarthrosis [None]
  - Haemarthrosis [None]
  - Haemarthrosis [None]
  - Soft tissue haemorrhage [Recovered/Resolved]
  - Renal haemorrhage [None]
  - Skin haemorrhage [None]
  - Haemarthrosis [Recovered/Resolved]
  - Haemarthrosis [None]
  - Haemorrhage [Recovered/Resolved]
  - Metrorrhagia [None]

NARRATIVE: CASE EVENT DATE: 2016
